APPROVED DRUG PRODUCT: MIGLUSTAT
Active Ingredient: MIGLUSTAT
Strength: 100MG
Dosage Form/Route: CAPSULE;ORAL
Application: A219111 | Product #001 | TE Code: AB
Applicant: NAVINTA LLC
Approved: Mar 14, 2025 | RLD: No | RS: No | Type: RX